FAERS Safety Report 15836876 (Version 4)
Quarter: 2019Q1

REPORT INFORMATION
  Report Type: Report from Study
  Country: CA (occurrence: CA)
  Receive Date: 20190117
  Receipt Date: 20190214
  Transmission Date: 20190417
  Serious: Yes (Death)
  Sender: FDA-Public Use
  Company Number: CA-TOLMAR, INC.-2019CA000395

PATIENT

DRUGS (1)
  1. ELIGARD [Suspect]
     Active Substance: LEUPROLIDE ACETATE
     Indication: PROSTATE CANCER
     Dosage: 30 MG, 4 MONTHS
     Route: 058
     Dates: start: 20180928

REACTIONS (5)
  - Fall [Unknown]
  - Cardio-respiratory arrest [Fatal]
  - Malaise [Unknown]
  - Coronary artery disease [Fatal]
  - Infarction [Fatal]

NARRATIVE: CASE EVENT DATE: 20181213
